FAERS Safety Report 12154056 (Version 1)
Quarter: 2016Q1

REPORT INFORMATION
  Report Type: Spontaneous
  Country: US (occurrence: US)
  Receive Date: 20160307
  Receipt Date: 20160307
  Transmission Date: 20160526
  Serious: No
  Sender: FDA-Public Use
  Company Number: US-ASTRAZENECA-2016SE20685

PATIENT
  Age: 46 Year
  Sex: Female
  Weight: 83 kg

DRUGS (6)
  1. BYETTA [Suspect]
     Active Substance: EXENATIDE
     Indication: GLUCOSE TOLERANCE IMPAIRED
     Route: 058
     Dates: start: 2007
  2. BYETTA [Suspect]
     Active Substance: EXENATIDE
     Indication: GLUCOSE TOLERANCE IMPAIRED
     Route: 058
     Dates: start: 201602
  3. VITAMIN D [Concomitant]
     Active Substance: CHOLECALCIFEROL
     Indication: SUPPLEMENTATION THERAPY
  4. METFORMIN [Concomitant]
     Active Substance: METFORMIN HYDROCHLORIDE
     Route: 065
  5. STADOL [Concomitant]
     Active Substance: BUTORPHANOL TARTRATE
     Indication: BACK PAIN
     Dosage: AS REQUIRED
     Route: 045
     Dates: start: 1998
  6. BYETTA [Suspect]
     Active Substance: EXENATIDE
     Indication: GLUCOSE TOLERANCE IMPAIRED
     Route: 058
     Dates: start: 2007, end: 2012

REACTIONS (1)
  - Weight decreased [Recovered/Resolved]

NARRATIVE: CASE EVENT DATE: 2007
